FAERS Safety Report 10240833 (Version 2)
Quarter: 2014Q3

REPORT INFORMATION
  Report Type: Spontaneous
  Country: US (occurrence: US)
  Receive Date: 20140617
  Receipt Date: 20140701
  Transmission Date: 20150326
  Serious: Yes (Other)
  Sender: FDA-Public Use
  Company Number: US-ROCHE-1416780

PATIENT
  Age: 62 Year
  Sex: Female
  Weight: 94.89 kg

DRUGS (8)
  1. APAP [Concomitant]
     Active Substance: ACETAMINOPHEN
     Indication: PREMEDICATION
     Route: 048
  2. HERCEPTIN [Suspect]
     Active Substance: TRASTUZUMAB
     Indication: NEOADJUVANT THERAPY
     Route: 041
     Dates: start: 20140221, end: 20140425
  3. LOMOTIL (UNITED STATES) [Concomitant]
     Indication: DIARRHOEA
     Dosage: 2.5/.025 MG
     Route: 048
     Dates: start: 20140409
  4. PERJETA [Suspect]
     Active Substance: PERTUZUMAB
     Indication: BREAST CANCER
     Route: 042
     Dates: start: 20140307, end: 20140418
  5. CARBOPLATIN. [Concomitant]
     Active Substance: CARBOPLATIN
     Indication: NEOADJUVANT THERAPY
     Route: 041
     Dates: start: 20140214, end: 20140425
  6. K-DUR [Concomitant]
     Active Substance: POTASSIUM CHLORIDE
     Route: 048
     Dates: start: 20140411
  7. TAXOTERE [Concomitant]
     Active Substance: DOCETAXEL
     Indication: NEOADJUVANT THERAPY
     Route: 041
     Dates: start: 20140214, end: 20140425
  8. BENADRYL [Concomitant]
     Active Substance: DIPHENHYDRAMINE HYDROCHLORIDE
     Indication: PREMEDICATION
     Route: 042

REACTIONS (7)
  - Anaphylactic reaction [Unknown]
  - Syncope [Recovered/Resolved]
  - Nausea [Recovered/Resolved]
  - Blood pressure increased [Recovered/Resolved]
  - Rash [Unknown]
  - Eye swelling [Unknown]
  - Vomiting [Recovered/Resolved]

NARRATIVE: CASE EVENT DATE: 20140418
